FAERS Safety Report 19123777 (Version 1)
Quarter: 2021Q2

REPORT INFORMATION
  Report Type: Spontaneous
  Country: FR (occurrence: FR)
  Receive Date: 20210412
  Receipt Date: 20210412
  Transmission Date: 20210717
  Serious: Yes (Hospitalization)
  Sender: FDA-Public Use
  Company Number: FR-ORGANON-O2104FRA000477

PATIENT
  Age: 71 Year
  Sex: Female

DRUGS (2)
  1. FRACTAL LP [Suspect]
     Active Substance: FLUVASTATIN SODIUM
     Indication: HYPERCHOLESTEROLAEMIA
     Dosage: NOT STATED (FORMULATION REPORTED AS PROLONGED RELEASE FILM COATED TABLET)
     Route: 048
     Dates: start: 2013, end: 201807
  2. LIPTRUZET [Suspect]
     Active Substance: ATORVASTATIN CALCIUM\EZETIMIBE
     Indication: HYPERCHOLESTEROLAEMIA
     Dosage: 1 DOSAGE FORM, QD (FORMULATION REPORTED AS FILM?COATED TABLET)
     Route: 048
     Dates: start: 201807, end: 202010

REACTIONS (1)
  - Immune-mediated myositis [Not Recovered/Not Resolved]

NARRATIVE: CASE EVENT DATE: 202008
